FAERS Safety Report 8432652-3 (Version None)
Quarter: 2012Q2

REPORT INFORMATION
  Report Type: 
  Country: None (occurrence: None)
  Receive Date: 20120613
  Receipt Date: 20120604
  Transmission Date: 20120825
  Serious: Yes (Other)
  Sender: FDA-Public Use
  Company Number: US-BAYER-2011-111061

PATIENT
  Age: 29 Year
  Sex: Female

DRUGS (2)
  1. YAZ [Suspect]
     Indication: ACNE
  2. YAZ [Suspect]
     Indication: CONTRACEPTION

REACTIONS (12)
  - ANXIETY [None]
  - DEEP VEIN THROMBOSIS [None]
  - SCAR [None]
  - FLATULENCE [None]
  - ABDOMINAL DISTENSION [None]
  - CONSTIPATION [None]
  - INJURY [None]
  - CHOLECYSTECTOMY [None]
  - DYSPEPSIA [None]
  - EMOTIONAL DISTRESS [None]
  - DIARRHOEA [None]
  - DEPRESSION [None]
